FAERS Safety Report 8273527-2 (Version None)
Quarter: 2012Q2

REPORT INFORMATION
  Report Type: 
  Country: None (occurrence: None)
  Receive Date: 20120411
  Receipt Date: 20120403
  Transmission Date: 20120825
  Serious: Yes (Other)
  Sender: FDA-Public Use
  Company Number: US-BAYER-2012-032598

PATIENT
  Age: 30 Year
  Sex: Female

DRUGS (1)
  1. MIRENA [Suspect]
     Dosage: 20 MCG/24HR, CONT
     Route: 015
     Dates: start: 20111201, end: 20120401

REACTIONS (5)
  - HEADACHE [None]
  - VAGINAL HAEMORRHAGE [None]
  - MIGRAINE [None]
  - ADNEXA UTERI PAIN [None]
  - DEVICE DISLOCATION [None]
